FAERS Safety Report 12100747 (Version 1)
Quarter: 2016Q1

REPORT INFORMATION
  Report Type: Spontaneous
  Country: DE (occurrence: DE)
  Receive Date: 20160222
  Receipt Date: 20160222
  Transmission Date: 20160526
  Serious: Yes (Hospitalization, Other)
  Sender: FDA-Public Use
  Company Number: DE-JNJFOC-20160218636

PATIENT
  Age: 17 Year
  Sex: Male
  Weight: 94 kg

DRUGS (3)
  1. NOVALGIN [Suspect]
     Active Substance: METAMIZOLE SODIUM
     Indication: FRACTURE PAIN
     Route: 048
     Dates: start: 20151219, end: 20160118
  2. TRAMAL [Suspect]
     Active Substance: TRAMADOL
     Indication: FRACTURE PAIN
     Route: 048
     Dates: start: 20151219, end: 20160118
  3. MONO-EMBOLEX [Suspect]
     Active Substance: CERTOPARIN SODIUM
     Indication: PRODUCT USED FOR UNKNOWN INDICATION
     Route: 058
     Dates: start: 20151219

REACTIONS (2)
  - Leukopenia [Not Recovered/Not Resolved]
  - Neutrophil count decreased [Not Recovered/Not Resolved]

NARRATIVE: CASE EVENT DATE: 20160118
